FAERS Safety Report 8032484-4 (Version None)
Quarter: 2011Q4

REPORT INFORMATION
  Report Type: 
  Country: None (occurrence: None)
  Receive Date: 20111222
  Receipt Date: 20111215
  Transmission Date: 20120403
  Serious: Yes (Other)
  Sender: FDA-Public Use
  Company Number: DSA_48272_2011

PATIENT
  Sex: Female
  Weight: 77.5651 kg

DRUGS (11)
  1. XENAZINE [Suspect]
     Indication: DYSTONIA
     Dosage: (12.5 MG QD ORAL), (12.5 MG BID ORAL), (12.5 MG TID ORAL), (12.5 MG QD ORAL)
     Route: 048
     Dates: start: 20111101
  2. XENAZINE [Suspect]
     Indication: DYSTONIA
     Dosage: (12.5 MG QD ORAL), (12.5 MG BID ORAL), (12.5 MG TID ORAL), (12.5 MG QD ORAL)
     Route: 048
     Dates: start: 20110929, end: 20111005
  3. CLONAZEPAM [Concomitant]
  4. ESTRADERM [Concomitant]
  5. LANSOPRAZOLE [Concomitant]
  6. VENTOLIN HFA [Concomitant]
  7. ADVAIR DISKUS 100/50 [Concomitant]
  8. AMRIX [Concomitant]
  9. BACLOFEN [Concomitant]
  10. PROVENTIL-HFA [Concomitant]
  11. BENZTROPINE MESYLATE [Concomitant]

REACTIONS (14)
  - VOMITING [None]
  - COUGH [None]
  - FRUSTRATION [None]
  - AGITATION [None]
  - DYSPNOEA [None]
  - ANXIETY [None]
  - HYPERHIDROSIS [None]
  - HEADACHE [None]
  - IRRITABILITY [None]
  - DEPRESSION [None]
  - NAUSEA [None]
  - VISION BLURRED [None]
  - PSYCHOMOTOR HYPERACTIVITY [None]
  - MOOD SWINGS [None]
